FAERS Safety Report 25733872 (Version 2)
Quarter: 2025Q3

REPORT INFORMATION
  Report Type: Spontaneous
  Country: PK (occurrence: PK)
  Receive Date: 20250828
  Receipt Date: 20250905
  Transmission Date: 20251020
  Serious: Yes (Other)
  Sender: ALKEM
  Company Number: PK-ALKEM LABORATORIES LIMITED-JP-ALKEM-2025-09237

PATIENT
  Age: 11 Month
  Sex: Male

DRUGS (4)
  1. TRIAMCINOLONE ACETONIDE [Suspect]
     Active Substance: TRIAMCINOLONE ACETONIDE
     Indication: Rash
     Route: 061
  2. Ciclopriox [Concomitant]
     Indication: Seborrhoeic dermatitis
     Route: 065
  3. KETOCONAZOLE [Concomitant]
     Active Substance: KETOCONAZOLE
     Indication: Seborrhoeic dermatitis
     Route: 065
  4. SELENIUM SULFIDE [Concomitant]
     Active Substance: SELENIUM SULFIDE
     Indication: Seborrhoeic dermatitis
     Route: 065

REACTIONS (1)
  - Pseudo Cushing^s syndrome [Unknown]
